FAERS Safety Report 21270758 (Version 1)
Quarter: 2022Q3

REPORT INFORMATION
  Report Type: Spontaneous
  Country: US (occurrence: None)
  Receive Date: 20220830
  Receipt Date: 20220830
  Transmission Date: 20221027
  Serious: Yes (Hospitalization)
  Sender: FDA-Public Use
  Company Number: None

PATIENT
  Age: 62 Year
  Sex: Male
  Weight: 50.7 kg

DRUGS (1)
  1. CISPLATIN [Suspect]
     Active Substance: CISPLATIN

REACTIONS (6)
  - Stomatitis [None]
  - Nausea [None]
  - Oropharyngeal pain [None]
  - Malnutrition [None]
  - Dehydration [None]
  - Dysphagia [None]

NARRATIVE: CASE EVENT DATE: 20220823
